FAERS Safety Report 16976837 (Version 2)
Quarter: 2020Q4

REPORT INFORMATION
  Report Type: Spontaneous
  Country: FR (occurrence: FR)
  Receive Date: 20191030
  Receipt Date: 20201019
  Transmission Date: 20210113
  Serious: Yes (Hospitalization, Other)
  Sender: FDA-Public Use
  Company Number: FR-SHIRE-FR201935251

PATIENT

DRUGS (15)
  1. KINERET [Suspect]
     Active Substance: ANAKINRA
     Indication: FOETAL EXPOSURE DURING PREGNANCY
     Dosage: UNK
     Route: 064
     Dates: start: 2015, end: 20151104
  2. PERFALGAN [Suspect]
     Active Substance: ACETAMINOPHEN
     Indication: FOETAL EXPOSURE DURING PREGNANCY
     Dosage: UNK
     Route: 064
     Dates: start: 20151129, end: 201511
  3. UN-ALFA [Concomitant]
     Active Substance: ALFACALCIDOL
     Indication: HYPOCALCAEMIA
  4. TARDYFERON B9 [FERROUS SULFATE;FOLIC ACID;MUCOPROTEOSE] [Concomitant]
     Active Substance: FERROUS SULFATE\FOLIC ACID\GASTRIC MUCIN
     Indication: PRODUCT USED FOR UNKNOWN INDICATION
  5. HUMAN NORMAL IMMUNOGLOBULIN [Suspect]
     Active Substance: HUMAN IMMUNOGLOBULIN G
     Indication: FOETAL EXPOSURE DURING PREGNANCY
     Dosage: UNK
     Route: 064
     Dates: start: 20151129, end: 201511
  6. PREDNISONE. [Suspect]
     Active Substance: PREDNISONE
     Dosage: DOSE: 500 MG
     Route: 064
     Dates: start: 20151128, end: 201511
  7. ACICLOVIR [Concomitant]
     Active Substance: ACYCLOVIR
     Indication: PROPHYLAXIS AGAINST HIV INFECTION
  8. COLCHICINE. [Concomitant]
     Active Substance: COLCHICINE
     Dosage: UNK
     Route: 064
     Dates: start: 20151128, end: 201511
  9. ETANERCEPT [Concomitant]
     Active Substance: ETANERCEPT
     Indication: PRODUCT USED FOR UNKNOWN INDICATION
  10. PREDNISONE. [Suspect]
     Active Substance: PREDNISONE
     Indication: FOETAL EXPOSURE DURING PREGNANCY
     Dosage: DOSE: 500 MG
     Route: 064
     Dates: start: 2015, end: 20151117
  11. ROACTEMRA [Suspect]
     Active Substance: TOCILIZUMAB
     Indication: FOETAL EXPOSURE DURING PREGNANCY
     Dosage: UNK
     Route: 064
     Dates: start: 20151012, end: 20151109
  12. COLCHICINE. [Concomitant]
     Active Substance: COLCHICINE
     Indication: FOETAL EXPOSURE DURING PREGNANCY
     Dosage: UNK
     Route: 064
     Dates: start: 2015, end: 20151117
  13. HUMAN NORMAL IMMUNOGLOBULIN [Suspect]
     Active Substance: HUMAN IMMUNOGLOBULIN G
     Dosage: UNK UNK, 1X/DAY:QD
     Route: 064
     Dates: start: 20151128, end: 20151128
  14. CIMZIA [Suspect]
     Active Substance: CERTOLIZUMAB PEGOL
     Indication: FOETAL EXPOSURE DURING PREGNANCY
     Dosage: UNK
     Route: 064
     Dates: start: 20151118, end: 201511
  15. KINERET [Suspect]
     Active Substance: ANAKINRA
     Dosage: UNK
     Route: 064
     Dates: end: 20151008

REACTIONS (9)
  - Hypocalcaemia [Recovered/Resolved]
  - Premature baby [Unknown]
  - Thrombocytopenia neonatal [Recovering/Resolving]
  - Neonatal infection [Unknown]
  - Gastrointestinal disorder [Recovering/Resolving]
  - Pyrexia [Recovering/Resolving]
  - Foetal exposure during pregnancy [Unknown]
  - Hepatosplenomegaly neonatal [Recovering/Resolving]
  - Bradycardia foetal [Recovered/Resolved]

NARRATIVE: CASE EVENT DATE: 2015
